FAERS Safety Report 25607182 (Version 1)
Quarter: 2025Q3

REPORT INFORMATION
  Report Type: Spontaneous
  Country: US (occurrence: None)
  Receive Date: 20250725
  Receipt Date: 20250725
  Transmission Date: 20251020
  Serious: Yes (Other)
  Sender: FDA-CTU
  Company Number: None

PATIENT
  Age: 48 Year
  Sex: Male
  Weight: 112.5 kg

DRUGS (3)
  1. SCOPOLAMINE [Suspect]
     Active Substance: SCOPOLAMINE
     Indication: Vomiting
  2. METFORMIN [Concomitant]
     Active Substance: METFORMIN HYDROCHLORIDE
  3. B12 [Concomitant]

REACTIONS (7)
  - Dizziness [None]
  - Dementia [None]
  - Feeling hot [None]
  - Diplopia [None]
  - Miosis [None]
  - Pallor [None]
  - Yellow skin [None]

NARRATIVE: CASE EVENT DATE: 20250724
